FAERS Safety Report 11991807 (Version 1)
Quarter: 2016Q1

REPORT INFORMATION
  Report Type: Spontaneous
  Country: US (occurrence: US)
  Receive Date: 20160203
  Receipt Date: 20160203
  Transmission Date: 20160526
  Serious: No
  Sender: FDA-Public Use
  Company Number: US-JNJFOC-20160105439

PATIENT
  Age: 81 Year
  Sex: Female
  Weight: 70.31 kg

DRUGS (9)
  1. VISINE [Suspect]
     Active Substance: TETRAHYDROZOLINE HYDROCHLORIDE
     Route: 047
  2. TENORMIN [Concomitant]
     Active Substance: ATENOLOL
     Indication: CARDIAC DISORDER
     Dosage: 25 MG DAILY
     Route: 065
  3. HYDROCHLOROTHIAZIDE. [Concomitant]
     Active Substance: HYDROCHLOROTHIAZIDE
     Indication: CARDIAC DISORDER
     Route: 065
  4. AMLODIPINE [Concomitant]
     Active Substance: AMLODIPINE BESYLATE
     Indication: CARDIAC DISORDER
     Route: 065
  5. VISINE [Suspect]
     Active Substance: TETRAHYDROZOLINE HYDROCHLORIDE
     Indication: DRY EYE
     Dosage: 1 DROP IN EACH EYE ONCE
     Route: 047
  6. POTASSIUM CHLORIDE. [Concomitant]
     Active Substance: POTASSIUM CHLORIDE
     Indication: MUSCLE SPASMS
     Route: 065
  7. HYDRALAZINE [Concomitant]
     Active Substance: HYDRALAZINE HYDROCHLORIDE
     Indication: CARDIAC DISORDER
     Route: 065
  8. LEVOTHYROXINE. [Concomitant]
     Active Substance: LEVOTHYROXINE
     Indication: THYROID DISORDER
     Dosage: 50 MCG
     Route: 065
  9. TENORMIN [Concomitant]
     Active Substance: ATENOLOL
     Indication: BLOOD PRESSURE MEASUREMENT
     Dosage: 25 MG DAILY
     Route: 065

REACTIONS (3)
  - Product use issue [Unknown]
  - Eye irritation [Unknown]
  - Off label use [Unknown]
